FAERS Safety Report 5308661-X (Version None)
Quarter: 2007Q2

REPORT INFORMATION
  Report Type: 
  Country: None (occurrence: None)
  Receive Date: 20070426
  Receipt Date: 20070413
  Transmission Date: 20071010
  Serious: No
  Sender: FDA-Public Use
  Company Number: ES-AVENTIS-200713487GDDC

PATIENT
  Age: 28 Year
  Sex: Female

DRUGS (2)
  1. ARAVA [Suspect]
     Indication: RHEUMATOID ARTHRITIS
     Route: 048
     Dates: end: 20070409
  2. DACORTIN [Suspect]
     Indication: RHEUMATOID ARTHRITIS
     Route: 048

REACTIONS (1)
  - DRUG EXPOSURE DURING PREGNANCY [None]
